FAERS Safety Report 9954861 (Version 1)
Quarter: 2014Q1

REPORT INFORMATION
  Report Type: Spontaneous
  Country: US (occurrence: US)
  Receive Date: 20140304
  Receipt Date: 20140304
  Transmission Date: 20141002
  Serious: No
  Sender: FDA-Public Use
  Company Number: US-SHIRE-US201400251

PATIENT
  Sex: 0

DRUGS (4)
  1. LIALDA [Suspect]
     Indication: COLITIS ULCERATIVE
     Dosage: 4.8 G(FOUR OF 1.2 G TABLETS), 1X/DAY:QD
     Route: 048
     Dates: start: 20140223, end: 20140228
  2. LIALDA [Suspect]
     Dosage: 1.2 G, 1X/DAY:QD
     Route: 048
     Dates: start: 20140220
  3. SERTRALINE [Concomitant]
     Indication: ANXIETY
     Dosage: 100 MG, 1X/DAY:QD
     Route: 048
     Dates: start: 2012
  4. SERTRALINE [Concomitant]
     Indication: DEPRESSION

REACTIONS (6)
  - Decreased appetite [Not Recovered/Not Resolved]
  - Abnormal loss of weight [Not Recovered/Not Resolved]
  - Medication residue present [Unknown]
  - Fatigue [Not Recovered/Not Resolved]
  - Diarrhoea [Not Recovered/Not Resolved]
  - Abdominal pain upper [Unknown]
